FAERS Safety Report 17332523 (Version 1)
Quarter: 2020Q1

REPORT INFORMATION
  Report Type: Spontaneous
  Country: CN (occurrence: CN)
  Receive Date: 20200128
  Receipt Date: 20200128
  Transmission Date: 20200409
  Serious: Yes (Other)
  Sender: FDA-Public Use
  Company Number: CN-FRESENIUS KABI-FK202000874

PATIENT
  Age: 78 Year
  Sex: Male
  Weight: 65 kg

DRUGS (13)
  1. LIPOVENOES MCT 20% [Suspect]
     Active Substance: EGG PHOSPHOLIPIDS\GLYCERIN\MEDIUM-CHAIN TRIGLYCERIDES\SOYBEAN OIL
     Indication: NUTRITIONAL SUPPLEMENTATION
     Dosage: 350ML, QD
     Route: 041
     Dates: start: 20200116, end: 20200119
  2. MINERALS NOS [Concomitant]
     Active Substance: MINERALS
     Indication: NUTRITIONAL SUPPLEMENTATION
     Dosage: 10ML QD
     Route: 041
     Dates: start: 20200116, end: 20200119
  3. POTASSIUM CHLORIDE. [Concomitant]
     Active Substance: POTASSIUM CHLORIDE
     Indication: NUTRITIONAL SUPPLEMENTATION
     Dosage: 60ML QD
     Route: 041
     Dates: start: 20200116, end: 20200119
  4. MAGNESIUM SULFATE. [Concomitant]
     Active Substance: MAGNESIUM SULFATE
     Indication: MINERAL SUPPLEMENTATION
     Dosage: 3ML QD
     Route: 041
     Dates: start: 20200116, end: 20200119
  5. ERGOCALCIFEROL/RETINOL PALMITATE/PHYTOMENADIONE/VITAMIN E NOS [Suspect]
     Active Substance: VITAMINS
     Indication: NUTRITIONAL SUPPLEMENTATION
     Dosage: 1PCS, QD
     Route: 041
     Dates: start: 20200116, end: 20200119
  6. SODIUM CHLORIDE. [Concomitant]
     Active Substance: SODIUM CHLORIDE
     Indication: NUTRITIONAL SUPPLEMENTATION
     Dosage: 30ML QD
     Route: 041
     Dates: start: 20200116, end: 20200119
  7. AMINO ACIDS NOS [Concomitant]
     Active Substance: AMINO ACIDS, SOURCE UNSPECIFIED
     Indication: NUTRITIONAL SUPPLEMENTATION
     Dosage: 850ML QD
     Route: 041
     Dates: start: 20200116, end: 20200119
  8. ASCORBIC ACID/PYRIDOXINE HYDROCHLORIDE/BIOTIN/FOLIC ACID/CYANOCOBALAMIN/RIBOFLAVIN/NICOTINAMIDE/CALC [Concomitant]
     Indication: NUTRITIONAL SUPPLEMENTATION
     Dosage: 2 IU QD
     Route: 041
     Dates: start: 20200116, end: 20200119
  9. GLUCOSE [Concomitant]
     Active Substance: DEXTROSE
     Indication: NUTRITIONAL SUPPLEMENTATION
     Dosage: 450ML QD
     Route: 041
     Dates: start: 20200116, end: 20200119
  10. CALCIUM GLUCONATE. [Concomitant]
     Active Substance: CALCIUM GLUCONATE
     Indication: MINERAL SUPPLEMENTATION
     Dosage: 10ML QD
     Route: 041
     Dates: start: 20200116, end: 20200119
  11. INSULIN [Concomitant]
     Active Substance: INSULIN NOS
     Indication: PRODUCT USED FOR UNKNOWN INDICATION
     Dosage: 36IU
     Route: 041
  12. SODIUM GLYCEROPHOSPHATE [Concomitant]
     Active Substance: SODIUM GLYCEROPHOSPHATE
     Indication: NUTRITIONAL SUPPLEMENTATION
     Dosage: 10ML QD
     Route: 041
     Dates: start: 20200116, end: 20200119
  13. GLUCOSE [Concomitant]
     Active Substance: DEXTROSE
     Indication: NUTRITIONAL SUPPLEMENTATION
     Dosage: 300ML QD
     Route: 041
     Dates: start: 20200116, end: 20200119

REACTIONS (3)
  - Chills [Recovered/Resolved]
  - Pyrexia [Recovered/Resolved]
  - Feeling cold [Recovered/Resolved]

NARRATIVE: CASE EVENT DATE: 20200119
